FAERS Safety Report 15953707 (Version 1)
Quarter: 2019Q1

REPORT INFORMATION
  Report Type: Report from Study
  Country: None (occurrence: FR)
  Receive Date: 20190213
  Receipt Date: 20190213
  Transmission Date: 20190417
  Serious: Yes (Hospitalization, Other)
  Sender: FDA-Public Use
  Company Number: FR-ABBVIE-18K-056-2406789-00

PATIENT
  Age: 68 Year
  Sex: Female

DRUGS (1)
  1. DUODOPA [Suspect]
     Active Substance: CARBIDOPA\LEVODOPA
     Indication: PARKINSON^S DISEASE
     Route: 058
     Dates: start: 20180207

REACTIONS (7)
  - Device dislocation [Recovered/Resolved]
  - Stoma site extravasation [Unknown]
  - Incorrect route of product administration [Not Recovered/Not Resolved]
  - Emotional distress [Unknown]
  - Gastrointestinal perforation [Not Recovered/Not Resolved]
  - Medical device site pain [Unknown]
  - Stoma site haemorrhage [Unknown]

NARRATIVE: CASE EVENT DATE: 20180630
